FAERS Safety Report 9434515 (Version 2)
Quarter: 2014Q3

REPORT INFORMATION
  Report Type: Spontaneous
  Country: US (occurrence: None)
  Receive Date: 20130729
  Receipt Date: 20140804
  Transmission Date: 20150326
  Serious: Yes (Death, Life-Threatening)
  Sender: FDA-Public Use
  Company Number: 1713747-2013-99923

PATIENT
  Age: 63 Year
  Sex: Male
  Weight: 83.6 kg

DRUGS (7)
  1. FRESENIUS 2008K2 HEMODIALYSIS MACHINE [Concomitant]
  2. FERRLECIT [Concomitant]
     Active Substance: SODIUM FERRIC GLUCONATE COMPLEX
  3. FRESENIUS COMBISET [Concomitant]
  4. FRESENIUS 180 DIALYZER [Concomitant]
  5. EPOGEN [Concomitant]
     Active Substance: ERYTHROPOIETIN
  6. FRESENIUS COLLECTIVE CONCENTRATE - NATURALYTE [Concomitant]
  7. 0.9% SODIUM CHLORIDE INJECTION, USP IN MINI-BAG PLUS CONTAINER [Suspect]
     Active Substance: SODIUM CHLORIDE
     Indication: FLUID REPLACEMENT
     Dosage: 100-300ML, PRN IV (42)
     Route: 042

REACTIONS (4)
  - Cardio-respiratory arrest [None]
  - Blood pressure systolic increased [None]
  - Convulsion [None]
  - Unresponsive to stimuli [None]

NARRATIVE: CASE EVENT DATE: 20130712
